FAERS Safety Report 9821051 (Version 1)
Quarter: 2014Q1

REPORT INFORMATION
  Report Type: Spontaneous
  Country: HU (occurrence: HU)
  Receive Date: 20140116
  Receipt Date: 20140116
  Transmission Date: 20141002
  Serious: Yes (Other)
  Sender: FDA-Public Use
  Company Number: HU-WATSON-2014-00269

PATIENT
  Sex: Female

DRUGS (15)
  1. METHYLPREDNISOLONE (UNKNOWN) [Suspect]
     Indication: SARCOIDOSIS
     Dosage: 32 MG, DAILY
     Route: 048
  2. METHYLPREDNISOLONE (UNKNOWN) [Suspect]
     Indication: IMMUNOSUPPRESSANT DRUG THERAPY
     Dosage: 64 MG, DAILY
     Route: 048
     Dates: start: 201107
  3. METHYLPREDNISOLONE (UNKNOWN) [Suspect]
     Dosage: 24 MG, DAILY
     Route: 065
     Dates: start: 201010
  4. METHYLPREDNISOLONE (UNKNOWN) [Suspect]
     Dosage: GRADUALLY REDUCING DOSE
     Route: 065
  5. METHYLPREDNISOLONE (UNKNOWN) [Suspect]
     Dosage: 1000 MG, TOTAL
     Route: 051
  6. METHYLPREDNISOLONE (UNKNOWN) [Suspect]
     Dosage: 128 MG, DAILY
     Route: 048
  7. METHYLPREDNISOLONE (UNKNOWN) [Suspect]
     Dosage: 64 MG, DAILY
     Route: 048
  8. METHYLPREDNISOLONE (UNKNOWN) [Suspect]
     Dosage: 32 MG, DAILY, MAINTENANCE
     Route: 048
  9. METHYLPREDNISOLONE (UNKNOWN) [Suspect]
     Dosage: 16 MG, DAILY, MAINTENANCE
     Route: 048
  10. METHYLPREDNISOLONE (UNKNOWN) [Suspect]
     Dosage: 8 MG, DAILY
     Route: 048
  11. METHYLPREDNISOLONE (UNKNOWN) [Suspect]
     Dosage: UNK
     Route: 051
  12. METHYLPREDNISOLONE (UNKNOWN) [Suspect]
     Dosage: UNK
     Route: 048
  13. METHOTREXATE [Concomitant]
     Indication: SARCOIDOSIS
     Dosage: 7.5 MG, 1/WEEK
     Route: 065
     Dates: start: 201106, end: 201109
  14. METHOTREXATE [Concomitant]
     Dosage: 15 MG, 1/WEEK
     Route: 065
     Dates: start: 201109
  15. METHOTREXATE [Concomitant]
     Dosage: 7.5 MG, 1/WEEK
     Route: 065

REACTIONS (5)
  - Cushingoid [Unknown]
  - Weight increased [Unknown]
  - Blood glucose increased [Unknown]
  - Disease recurrence [Unknown]
  - Oedema [Unknown]
